FAERS Safety Report 4820956-2 (Version None)
Quarter: 2005Q4

REPORT INFORMATION
  Report Type: 
  Country: None (occurrence: None)
  Receive Date: 20051104
  Receipt Date: 20050629
  Transmission Date: 20060501
  Serious: Yes (Hospitalization, Disabling)
  Sender: FDA-Public Use
  Company Number: US-ROCHE-409452

PATIENT
  Age: 16 Year
  Sex: Male
  Weight: 54.4 kg

DRUGS (2)
  1. ACCUTANE [Suspect]
     Indication: ACNE
     Route: 065
     Dates: start: 19961003, end: 19961115
  2. ACCUTANE [Suspect]
     Route: 065
     Dates: start: 19961115, end: 19970818

REACTIONS (37)
  - ABDOMINAL PAIN UPPER [None]
  - ABSCESS [None]
  - ANAEMIA [None]
  - ANHEDONIA [None]
  - ANXIETY [None]
  - AUTOIMMUNE DISORDER [None]
  - CHEST PAIN [None]
  - CONDITION AGGRAVATED [None]
  - CROHN'S DISEASE [None]
  - DEPRESSION [None]
  - DIARRHOEA [None]
  - DYSURIA [None]
  - ERYTHEMA [None]
  - GASTRITIS [None]
  - GASTROINTESTINAL DISORDER [None]
  - GASTROINTESTINAL HAEMORRHAGE [None]
  - GRANULOMA [None]
  - ILEITIS [None]
  - INFECTION [None]
  - INFLAMMATORY BOWEL DISEASE [None]
  - INJURY [None]
  - LIGAMENT CALCIFICATION [None]
  - MULTI-ORGAN DISORDER [None]
  - MUSCULOSKELETAL DISORDER [None]
  - NAUSEA [None]
  - NECK INJURY [None]
  - PAIN [None]
  - PANIC ATTACK [None]
  - POLYP [None]
  - RECTAL HAEMORRHAGE [None]
  - RHEUMATOID ARTHRITIS [None]
  - SUICIDAL IDEATION [None]
  - TENDON CALCIFICATION [None]
  - TENDONITIS [None]
  - ULCER [None]
  - URETERIC OBSTRUCTION [None]
  - VOMITING [None]
